FAERS Safety Report 8097635-4 (Version None)
Quarter: 2012Q1

REPORT INFORMATION
  Report Type: 
  Country: None (occurrence: None)
  Receive Date: 20120128
  Receipt Date: 20110705
  Transmission Date: 20120608
  Serious: No
  Sender: FDA-Public Use
  Company Number: US-ABBOTT-11P-163-0836541-00

PATIENT
  Age: 51 Year
  Sex: Male

DRUGS (7)
  1. HUMIRA [Suspect]
     Indication: RHEUMATOID ARTHRITIS
  2. PRILOSEC [Concomitant]
     Indication: GASTROOESOPHAGEAL REFLUX DISEASE
  3. VIT E [Concomitant]
     Indication: PRODUCT USED FOR UNKNOWN INDICATION
  4. HUMIRA [Suspect]
     Dates: start: 20101201
  5. FENTANYL [Concomitant]
     Indication: ARTHRALGIA
     Dosage: PATCH
  6. NORCO [Concomitant]
     Indication: PAIN
  7. HUMIRA [Suspect]

REACTIONS (6)
  - SKIN EXFOLIATION [None]
  - VITAMIN D DECREASED [None]
  - DEVICE MALFUNCTION [None]
  - INJECTION SITE INFLAMMATION [None]
  - LETHARGY [None]
  - INCORRECT DOSE ADMINISTERED [None]
